FAERS Safety Report 9066805 (Version 2)
Quarter: 2015Q1

REPORT INFORMATION
  Report Type: Report from Study
  Country: JP (occurrence: JP)
  Receive Date: 20130214
  Receipt Date: 20150320
  Transmission Date: 20150721
  Serious: Yes (Death)
  Sender: FDA-Public Use
  Company Number: JP-GLAXOSMITHKLINE-B0862487A

PATIENT
  Age: 67 Year
  Sex: Female
  Weight: 55 kg

DRUGS (24)
  1. SILECE [Concomitant]
     Active Substance: FLUNITRAZEPAM
     Route: 048
     Dates: start: 20120907
  2. ZOSYN [Concomitant]
     Active Substance: PIPERACILLIN SODIUM\TAZOBACTAM SODIUM
     Route: 051
     Dates: start: 20121022, end: 20121025
  3. ACUATIM [Concomitant]
     Active Substance: NADIFLOXACIN
     Route: 050
     Dates: start: 20120915
  4. ITRIZOLE [Concomitant]
     Active Substance: ITRACONAZOLE
     Route: 048
     Dates: start: 20121005, end: 20121022
  5. TEICOPLANIN [Concomitant]
     Active Substance: TEICOPLANIN
     Route: 041
     Dates: start: 20121023
  6. MAGMITT [Concomitant]
     Active Substance: MAGNESIUM OXIDE
     Route: 048
     Dates: start: 20120919
  7. ATOVAQUONE. [Suspect]
     Active Substance: ATOVAQUONE
     Indication: ANTIFUNGAL PROPHYLAXIS
     Route: 048
     Dates: start: 20120915, end: 20121025
  8. TRIAZOLAM. [Concomitant]
     Active Substance: TRIAZOLAM
     Route: 048
     Dates: start: 20120907, end: 20121010
  9. RANITIDINE HYDROCHLORIDE. [Suspect]
     Active Substance: RANITIDINE HYDROCHLORIDE
     Route: 048
     Dates: start: 20120907, end: 20120913
  10. PRIDOL [Concomitant]
     Active Substance: METHYLPREDNISOLONE SODIUM SUCCINATE
     Dosage: 1 G, QD
     Route: 042
     Dates: start: 20120925, end: 20120927
  11. PARIET [Concomitant]
     Active Substance: RABEPRAZOLE SODIUM
     Route: 048
     Dates: start: 20120912
  12. PRIMOBOLAN-DEPOT [Concomitant]
     Active Substance: METHENOLONE ENANTHATE
     Route: 048
     Dates: start: 20120907, end: 20121010
  13. PYRIDOXAL PHOSPHATE HYDRATE [Concomitant]
     Route: 051
     Dates: start: 20120907
  14. METHYCOBAL [Concomitant]
     Active Substance: METHYLCOBALAMIN
     Route: 048
     Dates: start: 20120907
  15. VIDAZA [Concomitant]
     Active Substance: AZACITIDINE
     Indication: MYELODYSPLASTIC SYNDROME
     Route: 048
     Dates: start: 20121005, end: 20121011
  16. MAXIPIME [Concomitant]
     Active Substance: CEFEPIME HYDROCHLORIDE
     Route: 042
     Dates: start: 20121004, end: 20121022
  17. ARASENA-A [Concomitant]
     Active Substance: VIDARABINE
     Route: 050
     Dates: start: 20120920
  18. ENDOXAN [Concomitant]
     Active Substance: CYCLOPHOSPHAMIDE
     Dosage: 50 MG, QD
     Route: 048
     Dates: start: 20120717
  19. WARFARIN [Concomitant]
     Active Substance: WARFARIN
     Route: 048
     Dates: start: 20120905
  20. BASEN OD [Concomitant]
     Active Substance: VOGLIBOSE
     Route: 048
     Dates: start: 20120913
  21. RULID [Concomitant]
     Active Substance: ROXITHROMYCIN
     Route: 048
     Dates: start: 20120915
  22. VALTREX [Concomitant]
     Active Substance: VALACYCLOVIR HYDROCHLORIDE
     Route: 048
     Dates: start: 20120925, end: 20120929
  23. PREDNISOLONE. [Suspect]
     Active Substance: PREDNISOLONE
     Dosage: 45 MG, QD
     Route: 048
     Dates: start: 20110312
  24. FUNGUARD [Concomitant]
     Active Substance: MICAFUNGIN SODIUM
     Route: 041
     Dates: start: 20121023

REACTIONS (5)
  - Malaise [Not Recovered/Not Resolved]
  - Somnolence [Not Recovered/Not Resolved]
  - Chest pain [Not Recovered/Not Resolved]
  - Disease progression [Fatal]
  - Hepatic function abnormal [Recovering/Resolving]

NARRATIVE: CASE EVENT DATE: 20120906
